FAERS Safety Report 11558472 (Version 4)
Quarter: 2016Q1

REPORT INFORMATION
  Report Type: Spontaneous
  Country: US (occurrence: US)
  Receive Date: 20150928
  Receipt Date: 20160104
  Transmission Date: 20160525
  Serious: No
  Sender: FDA-Public Use
  Company Number: US-PFIZER INC-2015323910

PATIENT
  Age: 12 Year
  Sex: Male
  Weight: 42.63 kg

DRUGS (4)
  1. QUILLIVANT XR [Suspect]
     Active Substance: METHYLPHENIDATE HYDROCHLORIDE
     Indication: ATTENTION DEFICIT/HYPERACTIVITY DISORDER
     Dosage: 12 ML, 1X/DAY (ONCE A DAY IN MORNING)
     Route: 048
     Dates: start: 20150515, end: 20150925
  2. CLONIDINE. [Suspect]
     Active Substance: CLONIDINE
     Indication: SLEEP DISORDER
     Dosage: 0.1MG, 1X/DAY (ONCE A DAY IN EVENING)
     Dates: start: 20150304
  3. CLONIDINE. [Suspect]
     Active Substance: CLONIDINE
     Indication: INSOMNIA
  4. MAGNESIUM [Concomitant]
     Active Substance: MAGNESIUM
     Indication: MIGRAINE
     Dosage: UNK
     Dates: start: 20150602

REACTIONS (2)
  - Drug screen negative [Unknown]
  - Drug ineffective [Unknown]

NARRATIVE: CASE EVENT DATE: 2015
